FAERS Safety Report 20644430 (Version 1)
Quarter: 2022Q1

REPORT INFORMATION
  Report Type: Spontaneous
  Country: US (occurrence: US)
  Receive Date: 20220328
  Receipt Date: 20220328
  Transmission Date: 20220423
  Serious: No
  Sender: FDA-Public Use
  Company Number: US-SA-SAC20220321001419

PATIENT
  Sex: Male

DRUGS (3)
  1. JEVTANA [Suspect]
     Active Substance: CABAZITAXEL
     Dosage: U NK
     Route: 065
  2. DOCETAXEL [Concomitant]
     Active Substance: DOCETAXEL
     Route: 065
  3. DAROLUTAMIDE [Concomitant]
     Active Substance: DAROLUTAMIDE
     Dosage: UNK
     Route: 065

REACTIONS (1)
  - Prostatic specific antigen increased [Not Recovered/Not Resolved]
